FAERS Safety Report 4754730-2 (Version None)
Quarter: 2005Q3

REPORT INFORMATION
  Report Type: 
  Country: None (occurrence: None)
  Receive Date: 20050825
  Receipt Date: 20050825
  Transmission Date: 20060218
  Serious: Yes (Other)
  Sender: FDA-Public Use
  Company Number: None

PATIENT
  Age: 46 Year
  Sex: Female
  Weight: 68.0396 kg

DRUGS (1)
  1. PAXIL [Suspect]
     Indication: DEPRESSION
     Dosage: 10 MG   DAILY  PO
     Route: 048
     Dates: start: 20050701, end: 20050803

REACTIONS (4)
  - DIZZINESS [None]
  - FATIGUE [None]
  - MUSCLE TWITCHING [None]
  - NIGHTMARE [None]
